FAERS Safety Report 6761461-6 (Version None)
Quarter: 2010Q2

REPORT INFORMATION
  Report Type: 
  Country: None (occurrence: None)
  Receive Date: 20100608
  Receipt Date: 20100602
  Transmission Date: 20101027
  Serious: Yes (Hospitalization)
  Sender: FDA-Public Use
  Company Number: DE-ROCHE-707694

PATIENT
  Sex: Female
  Weight: 84 kg

DRUGS (6)
  1. TOCILIZUMAB [Suspect]
     Indication: RHEUMATOID ARTHRITIS
     Route: 042
     Dates: start: 20100217, end: 20100511
  2. ARAVA [Concomitant]
     Indication: RHEUMATOID ARTHRITIS
     Route: 048
     Dates: start: 20100105
  3. PREDNISOLONE [Concomitant]
     Indication: RHEUMATOID ARTHRITIS
     Dates: start: 20050816
  4. OMEP [Concomitant]
     Indication: PROPHYLAXIS
     Route: 048
     Dates: start: 20080408
  5. RAMIPRIL [Concomitant]
     Indication: HYPERTENSION
     Route: 048
     Dates: start: 20081218
  6. REWODINA [Concomitant]
     Route: 048

REACTIONS (2)
  - ANKLE FRACTURE [None]
  - FIBULA FRACTURE [None]
